FAERS Safety Report 7757955-7 (Version None)
Quarter: 2011Q3

REPORT INFORMATION
  Report Type: 
  Country: None (occurrence: None)
  Receive Date: 20110919
  Receipt Date: 20110912
  Transmission Date: 20111222
  Serious: Yes (Hospitalization)
  Sender: FDA-Public Use
  Company Number: US-BIOGENIDEC-2010BI042618

PATIENT
  Age: 48 Year
  Sex: Female

DRUGS (2)
  1. AVONEX [Suspect]
     Indication: MULTIPLE SCLEROSIS
     Route: 030
  2. AVONEX [Suspect]
     Route: 030
     Dates: start: 20090227

REACTIONS (10)
  - MULTIPLE SCLEROSIS RELAPSE [None]
  - DEPRESSED LEVEL OF CONSCIOUSNESS [None]
  - LOSS OF CONSCIOUSNESS [None]
  - FALL [None]
  - FOOT FRACTURE [None]
  - BLOOD PRESSURE INCREASED [None]
  - LIGAMENT RUPTURE [None]
  - PANCREATITIS [None]
  - LIMB INJURY [None]
  - THROMBOSIS [None]
